FAERS Safety Report 8202943-X (Version None)
Quarter: 2012Q1

REPORT INFORMATION
  Report Type: 
  Country: None (occurrence: None)
  Receive Date: 20120312
  Receipt Date: 20120309
  Transmission Date: 20120608
  Serious: Yes (Death)
  Sender: FDA-Public Use
  Company Number: US-ABBOTT-12P-163-0913427-00

PATIENT
  Sex: Male
  Weight: 47.67 kg

DRUGS (1)
  1. CREON [Suspect]
     Indication: CYSTIC FIBROSIS
     Dosage: 3 CAPS WITH EACH MEAL + 1 WITH SNACKS
     Dates: start: 20020101

REACTIONS (1)
  - CYSTIC FIBROSIS [None]
